FAERS Safety Report 14726035 (Version 1)
Quarter: 2018Q2

REPORT INFORMATION
  Report Type: Report from Study
  Country: US (occurrence: US)
  Receive Date: 20180406
  Receipt Date: 20180406
  Transmission Date: 20180711
  Serious: Yes (Other)
  Sender: FDA-Public Use
  Company Number: US-ROCHE-2099528

PATIENT
  Sex: Female

DRUGS (1)
  1. OCREVUS [Suspect]
     Active Substance: OCRELIZUMAB
     Indication: MULTIPLE SCLEROSIS
     Dosage: ONGOING: UNKNOWN?ON 02/MAY/2017, THE PATIENT WAS PRESCRIBED WITH OCRELIZUMAB INFUSION INITIAL DOSE A
     Route: 065

REACTIONS (1)
  - Bundle branch block left [Unknown]
